FAERS Safety Report 5064161-6 (Version None)
Quarter: 2006Q3

REPORT INFORMATION
  Report Type: 
  Country: None (occurrence: None)
  Receive Date: 20060728
  Receipt Date: 20051221
  Transmission Date: 20061208
  Serious: No
  Sender: FDA-Public Use
  Company Number: US-GLAXOSMITHKLINE-A0586649A

PATIENT
  Age: 3 Year
  Sex: Male

DRUGS (3)
  1. ZANTAC [Suspect]
     Dosage: 3ML TWICE PER DAY
     Route: 048
  2. ALBUTEROL SPIROS [Concomitant]
     Route: 055
  3. EPIPEN JR. [Concomitant]
     Route: 058

REACTIONS (1)
  - HYPERSENSITIVITY [None]
